FAERS Safety Report 8404652-0 (Version None)
Quarter: 2012Q2

REPORT INFORMATION
  Report Type: 
  Country: None (occurrence: None)
  Receive Date: 20120601
  Receipt Date: 20120517
  Transmission Date: 20120825
  Serious: Yes (Other)
  Sender: FDA-Public Use
  Company Number: GB-PFIZER INC-2012112959

PATIENT
  Age: 33 Year
  Sex: Male

DRUGS (12)
  1. OMEPRAZOLE [Concomitant]
     Indication: DYSPEPSIA
     Dosage: 20 MG, 1X/DAY
     Route: 048
     Dates: start: 20101210
  2. RAMIPRIL [Interacting]
     Dosage: 5 MG, DAILY
     Route: 065
     Dates: start: 20120302
  3. VENLAFAXINE [Concomitant]
     Indication: DEPRESSION
     Dosage: 300 MG, UNK
     Route: 048
     Dates: start: 20101217
  4. CLOZAPINE [Suspect]
     Dosage: 100 MG, 2X/DAY
     Route: 048
     Dates: start: 20111025, end: 20120307
  5. BECLOMETHASONE DIPROPIONATE [Concomitant]
     Indication: ASTHMA
     Dosage: 200 UG, 2X/DAY
     Route: 055
     Dates: start: 20110525
  6. RAMIPRIL [Interacting]
     Indication: HYPERTENSION
     Dosage: 2.5 MG,DAILY
     Route: 065
     Dates: start: 20110822
  7. RAMIPRIL [Interacting]
     Dosage: 10 MG,DAILY
     Route: 065
     Dates: start: 20120306, end: 20120509
  8. CALCICHEW-D3 [Concomitant]
     Indication: HEPATITIS C
     Dosage: UNK
     Route: 048
     Dates: start: 20110503
  9. CLOZAPINE [Suspect]
     Dosage: 100 MG, TWICE A DAY
     Route: 048
     Dates: start: 20120319, end: 20120401
  10. MOVIPREP [Concomitant]
     Indication: CONSTIPATION
     Dosage: 1 DF, 3X/DAY
     Route: 048
     Dates: start: 20110427
  11. RIBAVIRIN [Interacting]
     Indication: HEPATITIS C
     Dosage: 1200 MG, UNK
     Route: 048
     Dates: start: 20110516
  12. PEGINTERFERON ALFA-2A [Interacting]
     Indication: HEPATITIS C
     Dosage: 180 UG, WEEKLY
     Route: 058
     Dates: start: 20110516

REACTIONS (4)
  - DRUG INTERACTION [None]
  - NEUTROPHIL COUNT DECREASED [None]
  - WHITE BLOOD CELL COUNT DECREASED [None]
  - NEUTROPENIA [None]
